FAERS Safety Report 21049399 (Version 3)
Quarter: 2022Q3

REPORT INFORMATION
  Report Type: Other
  Country: IT (occurrence: IT)
  Receive Date: 20220706
  Receipt Date: 20220920
  Transmission Date: 20221027
  Serious: Yes (Other)
  Sender: FDA-Public Use
  Company Number: IT-CELLTRION HEALTHCARE HUNGARY KFT-2022IT008388

PATIENT
  Sex: Female

DRUGS (14)
  1. RITUXIMAB [Suspect]
     Active Substance: RITUXIMAB
     Indication: Juvenile idiopathic arthritis
     Dosage: UNK
     Route: 041
  2. ADALIMUMAB [Suspect]
     Active Substance: ADALIMUMAB
     Indication: Juvenile idiopathic arthritis
     Dosage: UNIT=NOT AVAILABLE; UNK
     Route: 065
  3. METHOTREXATE [Suspect]
     Active Substance: METHOTREXATE
     Indication: Juvenile idiopathic arthritis
     Route: 065
  4. LEFLUNOMIDE [Suspect]
     Active Substance: LEFLUNOMIDE
     Indication: Juvenile idiopathic arthritis
     Route: 065
  5. TOCILIZUMAB [Concomitant]
     Active Substance: TOCILIZUMAB
     Route: 065
  6. ABATACEPT [Concomitant]
     Active Substance: ABATACEPT
  7. SARILUMAB [Concomitant]
     Active Substance: SARILUMAB
  8. AZATHIOPRINE [Concomitant]
     Active Substance: AZATHIOPRINE
  9. METHOTREXATE [Concomitant]
     Active Substance: METHOTREXATE
  10. LEFLUNOMIDE [Concomitant]
     Active Substance: LEFLUNOMIDE
  11. CYCLOSPORINE [Concomitant]
     Active Substance: CYCLOSPORINE
  12. CERTOLIZUMAB [Concomitant]
     Active Substance: CERTOLIZUMAB
  13. PREDNISONE [Concomitant]
     Active Substance: PREDNISONE
  14. ETANERCEPT [Concomitant]
     Active Substance: ETANERCEPT
     Indication: Product used for unknown indication
     Dosage: UNK
     Route: 065

REACTIONS (7)
  - Premature separation of placenta [Unknown]
  - Juvenile idiopathic arthritis [Unknown]
  - Maternal exposure during pregnancy [Unknown]
  - Abortion spontaneous [Unknown]
  - Off label use [Unknown]
  - Pre-eclampsia [Unknown]
  - Premature delivery [Unknown]
